FAERS Safety Report 23523092 (Version 1)
Quarter: 2024Q1

REPORT INFORMATION
  Report Type: Report from Study
  Country: US (occurrence: None)
  Receive Date: 20240214
  Receipt Date: 20240214
  Transmission Date: 20240410
  Serious: Yes (Other)
  Sender: FDA-Public Use
  Company Number: 2024A033015

PATIENT
  Sex: Female
  Weight: 74.8 kg

DRUGS (12)
  1. TAGRISSO [Suspect]
     Active Substance: OSIMERTINIB
     Indication: Lung neoplasm malignant
     Route: 048
     Dates: start: 202206
  2. EVISTA [Concomitant]
     Active Substance: RALOXIFENE HYDROCHLORIDE
  3. CHONDROITIN SULFATE (BOVINE)\GLUCOSAMINE SULFATE [Concomitant]
     Active Substance: CHONDROITIN SULFATE (BOVINE)\GLUCOSAMINE SULFATE
  4. FISH OIL [Concomitant]
     Active Substance: FISH OIL
  5. LEVOTHYROXINE SODIUM [Concomitant]
     Active Substance: LEVOTHYROXINE SODIUM
  6. VENLAFAXINE HCL [Concomitant]
     Active Substance: VENLAFAXINE HYDROCHLORIDE
  7. LISINOPRIL [Concomitant]
     Active Substance: LISINOPRIL
  8. CALCIUM [Concomitant]
     Active Substance: CALCIUM
  9. VITAMINS [Concomitant]
     Active Substance: VITAMINS
  10. OMEPRAZOLE [Concomitant]
     Active Substance: OMEPRAZOLE
  11. MAGNESIUM CITRATE [Concomitant]
     Active Substance: MAGNESIUM CITRATE
  12. AVASTIN [Concomitant]
     Active Substance: BEVACIZUMAB

REACTIONS (14)
  - Bone neoplasm [Unknown]
  - Neoplasm progression [Unknown]
  - Back pain [Unknown]
  - Product intolerance [Unknown]
  - Depression [Unknown]
  - Hypertension [Unknown]
  - Nausea [Unknown]
  - Feeling abnormal [Unknown]
  - Feeling abnormal [Unknown]
  - Fall [Unknown]
  - Stomatitis [Recovering/Resolving]
  - Rash [Recovered/Resolved]
  - Product dose omission issue [Unknown]
  - Extra dose administered [Unknown]
